FAERS Safety Report 9362754 (Version 1)
Quarter: 2013Q2

REPORT INFORMATION
  Report Type: Spontaneous
  Country: US (occurrence: US)
  Receive Date: 20130623
  Receipt Date: 20130623
  Transmission Date: 20140414
  Serious: No
  Sender: FDA-Public Use
  Company Number: US-009507513-1306USA009264

PATIENT
  Sex: Female

DRUGS (1)
  1. VYTORIN [Suspect]
     Dosage: 10/20 MG TABLET TAKEN ONCE DAILY IN THE EVENING, 4 BLISTERS OF 7 TABS(1 X 28)
     Route: 048

REACTIONS (1)
  - Palpitations [Unknown]
